FAERS Safety Report 9689088 (Version 1)
Quarter: 2013Q4

REPORT INFORMATION
  Report Type: Spontaneous
  Country: IT (occurrence: IT)
  Receive Date: 20131114
  Receipt Date: 20131114
  Transmission Date: 20140711
  Serious: Yes (Other)
  Sender: FDA-Public Use
  Company Number: IT-TEVA-443869ISR

PATIENT
  Age: 71 Year
  Sex: Male
  Weight: 69 kg

DRUGS (3)
  1. FLUOROURACILE TEVA [Suspect]
     Indication: RECTOSIGMOID CANCER
     Dosage: 2500 MILLIGRAM DAILY;
     Route: 041
     Dates: start: 20131009, end: 20131011
  2. FLUOROURACILE TEVA [Suspect]
     Dosage: 680 MILLIGRAM DAILY;
     Route: 040
     Dates: start: 20131009, end: 20131009
  3. OXALIPLATINO SUN [Suspect]
     Indication: RECTOSIGMOID CANCER
     Dosage: 140 MILLIGRAM DAILY; CONCENTRATE FOR SOLUTION FOR INTRAVENOUS INFUSION. DAILY DOSE: 140 MG
     Route: 042
     Dates: start: 20131009, end: 20131009

REACTIONS (6)
  - Vomiting [Recovering/Resolving]
  - Diarrhoea [Recovering/Resolving]
  - Asthenia [Recovering/Resolving]
  - Blood creatinine increased [Recovering/Resolving]
  - Dehydration [Recovering/Resolving]
  - Azotaemia [Recovering/Resolving]
